FAERS Safety Report 5823820-5 (Version None)
Quarter: 2008Q3

REPORT INFORMATION
  Report Type: 
  Country: None (occurrence: None)
  Receive Date: 20080725
  Receipt Date: 20080715
  Transmission Date: 20090109
  Serious: Yes (Other)
  Sender: FDA-Public Use
  Company Number: US-PFIZER INC-2008060052

PATIENT

DRUGS (1)
  1. LYRICA [Suspect]

REACTIONS (1)
  - DEAFNESS [None]
